FAERS Safety Report 19487648 (Version 1)
Quarter: 2021Q3

REPORT INFORMATION
  Report Type: Spontaneous
  Country: US (occurrence: US)
  Receive Date: 20210702
  Receipt Date: 20210702
  Transmission Date: 20211014
  Serious: No
  Sender: FDA-Public Use
  Company Number: US-CELGENEUS-USA-20210607261

PATIENT
  Sex: Male
  Weight: 53 kg

DRUGS (5)
  1. KETOCONAZOLE. [Concomitant]
     Active Substance: KETOCONAZOLE
     Indication: PRODUCT USED FOR UNKNOWN INDICATION
     Route: 065
  2. PROCHLORPERAZINE MALEATE. [Concomitant]
     Active Substance: PROCHLORPERAZINE MALEATE
     Indication: PRODUCT USED FOR UNKNOWN INDICATION
     Route: 065
  3. ONUREG [Suspect]
     Active Substance: AZACITIDINE
     Indication: ADULT T-CELL LYMPHOMA/LEUKAEMIA
     Dosage: 300 MILLIGRAM
     Route: 048
     Dates: start: 20210506, end: 20210623
  4. ONUREG [Suspect]
     Active Substance: AZACITIDINE
     Indication: OFF LABEL USE
  5. FUROSEMIDE. [Concomitant]
     Active Substance: FUROSEMIDE
     Indication: PRODUCT USED FOR UNKNOWN INDICATION
     Route: 065

REACTIONS (3)
  - Vomiting [Unknown]
  - Diarrhoea [Unknown]
  - Nausea [Unknown]
